FAERS Safety Report 24683667 (Version 1)
Quarter: 2024Q4

REPORT INFORMATION
  Report Type: Spontaneous
  Country: BE (occurrence: BE)
  Receive Date: 20241202
  Receipt Date: 20241202
  Transmission Date: 20250115
  Serious: Yes (Other)
  Sender: STRIDES
  Company Number: BE-STRIDES ARCOLAB LIMITED-2024SP015673

PATIENT
  Sex: Male

DRUGS (5)
  1. METHYLDOPA [Suspect]
     Active Substance: METHYLDOPA
     Indication: Product used for unknown indication
     Dosage: UNK (PATIENT^S MOTHER TAKEN 250 MG ONCE A DAY FOR ARTERIAL HYPERTENSION)
     Route: 064
  2. LABETALOL [Suspect]
     Active Substance: LABETALOL
     Indication: Product used for unknown indication
     Dosage: UNK (PATIENT^S MOTHER TAKEN 100 MG THREE TIMES A DAY FOR ARTERIAL HYPERTENSION)
     Route: 064
  3. LABETALOL [Suspect]
     Active Substance: LABETALOL
     Dosage: UNK (PATIENT^S MOTHER TAKEN 200 MG THREE TIMES A DAY FOR ARTERIAL HYPERTENSION)
     Route: 064
  4. ASPIRIN [Suspect]
     Active Substance: ASPIRIN
     Indication: Product used for unknown indication
     Dosage: UNK (PATIENT^S MOTHER TAKEN 80 MG ONCE A DAY FOR ARTERIAL HYPERTENSION)
     Route: 064
  5. NIFEDIPINE [Suspect]
     Active Substance: NIFEDIPINE
     Indication: Product used for unknown indication
     Dosage: UNK (PATIENT^S MOTHER TAKEN 30 MG ONCE A DAY FOR ARTERIAL HYPERTENSION)
     Route: 064

REACTIONS (2)
  - Premature baby [Unknown]
  - Foetal exposure during pregnancy [Unknown]
